FAERS Safety Report 21849072 (Version 5)
Quarter: 2023Q1

REPORT INFORMATION
  Report Type: Report from Study
  Country: CA (occurrence: CA)
  Receive Date: 20230111
  Receipt Date: 20230227
  Transmission Date: 20230417
  Serious: Yes (Hospitalization)
  Sender: FDA-Public Use
  Company Number: CA-JNJFOC-20230103915

PATIENT
  Age: 79 Year
  Sex: Female

DRUGS (2)
  1. REMICADE [Suspect]
     Active Substance: INFLIXIMAB
     Indication: Psoriatic arthropathy
     Dosage: THE PATIENT RECEIVED LAST REMICADE DOSE ON 15-NOV-2022. THE PATIENT SWITCHING FROM REMICADE TO INFLI
     Route: 042
     Dates: start: 20110609
  2. REMICADE [Suspect]
     Active Substance: INFLIXIMAB
     Indication: Psoriasis

REACTIONS (8)
  - Respiratory syncytial virus infection [Not Recovered/Not Resolved]
  - Fall [Unknown]
  - Head injury [Unknown]
  - Eye contusion [Unknown]
  - Peripheral swelling [Unknown]
  - Blood glucose increased [Unknown]
  - Psoriasis [Unknown]
  - Inappropriate schedule of product administration [Unknown]

NARRATIVE: CASE EVENT DATE: 20221201
